FAERS Safety Report 4977720-3 (Version None)
Quarter: 2006Q2

REPORT INFORMATION
  Report Type: 
  Country: None (occurrence: None)
  Receive Date: 20060414
  Receipt Date: 20060412
  Transmission Date: 20061013
  Serious: Yes (Other)
  Sender: FDA-Public Use
  Company Number: SEWYE551512APR06

PATIENT
  Age: 59 Year
  Sex: Female

DRUGS (2)
  1. EFFEXOR [Suspect]
     Indication: DEPRESSION
     Dosage: 75 MG DAILY ORAL - SEE IMAGE
     Route: 048
     Dates: start: 20060101, end: 20060101
  2. EFFEXOR [Suspect]
     Indication: DEPRESSION
     Dosage: 75 MG DAILY ORAL - SEE IMAGE
     Route: 048
     Dates: start: 20060208, end: 20060309

REACTIONS (2)
  - CONDITION AGGRAVATED [None]
  - HEPATITIS C [None]
